FAERS Safety Report 15922075 (Version 1)
Quarter: 2019Q1

REPORT INFORMATION
  Report Type: Spontaneous
  Country: EC (occurrence: CA)
  Receive Date: 20190206
  Receipt Date: 20190206
  Transmission Date: 20190417
  Serious: Yes (Other)
  Sender: FDA-Public Use
  Company Number: EC-EDENBRIDGE PHARMACEUTICALS, LLC-CA-2019EDE000016

PATIENT

DRUGS (2)
  1. PREDNISOLONE SODIUM PHOSPHATE. [Suspect]
     Active Substance: PREDNISOLONE SODIUM PHOSPHATE
     Indication: INFANTILE HAEMANGIOMA
     Dosage: 2 MG/KG, QD (IN TWO DIVIDED DOSES)
     Route: 048
  2. PREDNISOLONE SODIUM PHOSPHATE. [Suspect]
     Active Substance: PREDNISOLONE SODIUM PHOSPHATE
     Dosage: DECREASING THE DOSE BY 1 MG PER MONTH (TAPERING SCHEDULE)
     Route: 048

REACTIONS (1)
  - Respiratory distress [Recovered/Resolved]
